FAERS Safety Report 13701698 (Version 2)
Quarter: 2017Q3

REPORT INFORMATION
  Report Type: Spontaneous
  Country: US (occurrence: US)
  Receive Date: 20170629
  Receipt Date: 20170705
  Transmission Date: 20171127
  Serious: Yes (Other)
  Sender: FDA-Public Use
  Company Number: US-PFIZER INC-2016137408

PATIENT
  Age: 67 Year
  Sex: Female

DRUGS (2)
  1. LYRICA [Suspect]
     Active Substance: PREGABALIN
     Indication: FIBROMYALGIA
     Dosage: 250 MG, 2X/DAY (1 CAPSULE (225 MG TOTAL) EVERY 12 (TWELVE) HOURS ADD 25 MG TO THIS DOSE BID 250 MG)
     Route: 048
     Dates: start: 20160121
  2. LYRICA [Suspect]
     Active Substance: PREGABALIN
     Dosage: 250 MG, 2X/DAY (1 CAPSULE (225 MG TOTAL) EVERY 12 (TWELVE) HOURS ADD 25 MG TO THIS DOSE BID 250 MG)
     Route: 048
     Dates: start: 20160926

REACTIONS (2)
  - Weight increased [Unknown]
  - Prescribed overdose [Unknown]
